FAERS Safety Report 5529375-7 (Version None)
Quarter: 2007Q4

REPORT INFORMATION
  Report Type: 
  Country: None (occurrence: None)
  Receive Date: 20071129
  Receipt Date: 20071119
  Transmission Date: 20080405
  Serious: Yes (Other)
  Sender: FDA-Public Use
  Company Number: B0489211A

PATIENT
  Age: 62 Year
  Sex: Female

DRUGS (3)
  1. SERETIDE DISKUS [Suspect]
     Indication: CHRONIC OBSTRUCTIVE PULMONARY DISEASE
     Dosage: 2PUFF TWICE PER DAY
     Route: 055
     Dates: start: 20010101
  2. PIASCLEDINE [Concomitant]
  3. ATROVENT [Concomitant]
     Route: 055

REACTIONS (6)
  - CONTUSION [None]
  - DRUG PRESCRIBING ERROR [None]
  - HAEMATOMA [None]
  - INCORRECT DOSE ADMINISTERED [None]
  - SKIN ATROPHY [None]
  - SKIN FRAGILITY [None]
